FAERS Safety Report 5334436-1 (Version None)
Quarter: 2007Q2

REPORT INFORMATION
  Report Type: 
  Country: None (occurrence: None)
  Receive Date: 20070525
  Receipt Date: 20060925
  Transmission Date: 20071010
  Serious: Yes (Other)
  Sender: FDA-Public Use
  Company Number: A0621569A

PATIENT
  Age: 47 Year
  Sex: Male

DRUGS (10)
  1. FLOLAN [Suspect]
     Route: 042
     Dates: start: 20060922
  2. ARGATROBAN [Concomitant]
  3. DOBUTAMINE HCL [Concomitant]
  4. LASIX [Concomitant]
  5. NEURONTIN [Concomitant]
  6. SYNTHROID [Concomitant]
  7. PROTONIX [Concomitant]
  8. POTASSIUM CHLORIDE [Concomitant]
  9. ZOFRAN [Concomitant]
  10. DILANTIN [Concomitant]

REACTIONS (1)
  - CONVULSION [None]
